FAERS Safety Report 8829795 (Version 1)
Quarter: 2012Q4

REPORT INFORMATION
  Report Type: 
  Country: US (occurrence: US)
  Receive Date: 20121008
  Receipt Date: 20121008
  Transmission Date: 20130627
  Serious: Yes (Death, Hospitalization)
  Sender: FDA-Public Use
  Company Number: US-ROCHE-1130768

PATIENT
  Sex: Male

DRUGS (6)
  1. RITUXAN [Suspect]
     Indication: BURKITT^S LYMPHOMA
     Route: 042
     Dates: start: 2011, end: 2011
  2. CYCLOPHOSPHAMIDE [Concomitant]
  3. VINCRISTINE [Concomitant]
  4. ADRIAMYCIN [Concomitant]
  5. DEXAMETHASONE [Concomitant]
  6. PREDNISONE [Concomitant]

REACTIONS (4)
  - Myocardial infarction [Fatal]
  - Anaemia [Unknown]
  - Dizziness [Unknown]
  - Tumour haemorrhage [Unknown]
